FAERS Safety Report 16562116 (Version 3)
Quarter: 2019Q4

REPORT INFORMATION
  Report Type: Spontaneous
  Country: BR (occurrence: BR)
  Receive Date: 20190711
  Receipt Date: 20191120
  Transmission Date: 20200122
  Serious: Yes (Other)
  Sender: FDA-Public Use
  Company Number: BR-009507513-1906BRA003159

PATIENT
  Age: 72 Year
  Sex: Female
  Weight: 52 kg

DRUGS (6)
  1. PANTOPRAZOLE [Suspect]
     Active Substance: PANTOPRAZOLE
     Dosage: UNK
     Dates: start: 201906, end: 2019
  2. SIMVASTATIN. [Suspect]
     Active Substance: SIMVASTATIN
     Dosage: 5 MG EVERY OTHER DAY
  3. LIMBITROL [Concomitant]
     Active Substance: AMITRIPTYLINE\CHLORDIAZEPOXIDE
     Indication: ANXIETY
     Dosage: 1 TABLET PER NIGHT
     Route: 048
  4. ARADOIS [Concomitant]
     Active Substance: LOSARTAN POTASSIUM
     Indication: HYPERTENSION
     Dosage: 50 MG (1 TABLET IN THE MORNING AND 1 TABLET IN THE AFTERNOON)
     Route: 048
  5. ZETIA [Suspect]
     Active Substance: EZETIMIBE
     Indication: BLOOD CHOLESTEROL INCREASED
     Dosage: 10 MG (1 TABLET PER DAY, BY THE MORNING; ORALLY)
     Route: 048
     Dates: start: 20190602, end: 20190605
  6. SINVASTACOR [Suspect]
     Active Substance: SIMVASTATIN

REACTIONS (15)
  - Stomatitis [Unknown]
  - Burn oral cavity [Unknown]
  - Dizziness [Recovered/Resolved]
  - Fear of disease [Not Recovered/Not Resolved]
  - Body height decreased [Unknown]
  - Liver disorder [Recovered/Resolved]
  - Abdominal discomfort [Recovered/Resolved]
  - Gastrooesophageal reflux disease [Recovered/Resolved]
  - Malaise [Unknown]
  - Drug ineffective [Unknown]
  - Wound [Unknown]
  - Blood pressure increased [Recovered/Resolved]
  - Feeling abnormal [Unknown]
  - Adverse event [Unknown]
  - Weight increased [Unknown]

NARRATIVE: CASE EVENT DATE: 2019
